FAERS Safety Report 18596101 (Version 13)
Quarter: 2024Q2

REPORT INFORMATION
  Report Type: Report from Study
  Country: DE (occurrence: DE)
  Receive Date: 20201209
  Receipt Date: 20240411
  Transmission Date: 20240715
  Serious: Yes (Hospitalization, Other)
  Sender: FDA-Public Use
  Company Number: DE-ROCHE-2176591

PATIENT
  Age: 49 Year
  Sex: Female
  Weight: 78 kg

DRUGS (31)
  1. ATORVASTATIN [Suspect]
     Active Substance: ATORVASTATIN
     Indication: Blood cholesterol increased
     Dosage: 20 MILLIGRAM
     Route: 065
     Dates: end: 20190530
  2. METFORMIN [Suspect]
     Active Substance: METFORMIN HYDROCHLORIDE
     Indication: Product used for unknown indication
     Dosage: 1000 MILLIGRAM, BID
     Route: 065
     Dates: end: 20190422
  3. METFORMIN [Suspect]
     Active Substance: METFORMIN HYDROCHLORIDE
     Dosage: 500 MILLIGRAM, BID
     Route: 065
     Dates: start: 20190423
  4. METFORMIN [Suspect]
     Active Substance: METFORMIN HYDROCHLORIDE
     Dosage: 500 MILLIGRAM, BID
     Route: 065
  5. OCREVUS [Suspect]
     Active Substance: OCRELIZUMAB
     Indication: Relapsing-remitting multiple sclerosis
     Dosage: 300 MILLIGRAM, EVERY 182 DAYS
     Route: 042
     Dates: start: 20180808
  6. OCREVUS [Suspect]
     Active Substance: OCRELIZUMAB
     Dosage: 300 MILLIGRAM
     Route: 042
     Dates: start: 20180822
  7. OCREVUS [Suspect]
     Active Substance: OCRELIZUMAB
     Dosage: 600 MILLIGRAM
     Route: 042
     Dates: start: 20190220
  8. OCREVUS [Suspect]
     Active Substance: OCRELIZUMAB
     Dosage: 600 MILLIGRAM
     Route: 042
     Dates: start: 20200813
  9. OCREVUS [Suspect]
     Active Substance: OCRELIZUMAB
     Dosage: UNK (DATE REPORTED AS 23-0-2021) (Q314 DAYS)
     Route: 042
     Dates: start: 2021
  10. OCREVUS [Suspect]
     Active Substance: OCRELIZUMAB
     Dosage: 600 MG, EVERY 314 DAYS (5TH MAINTENANCE DOSE)
     Route: 042
     Dates: start: 20210623
  11. OCREVUS [Suspect]
     Active Substance: OCRELIZUMAB
     Dosage: 600 MILLIGRAM
     Route: 042
     Dates: start: 20190220
  12. COVID-19 VACCINE NOS [Suspect]
     Active Substance: COVID-19 VACCINE NOS
     Indication: Product used for unknown indication
     Dosage: SUBSEQUENT DOSE: 07/MAY/2021
     Route: 065
     Dates: start: 20210326
  13. PANTOPRAZOLE SODIUM [Concomitant]
     Active Substance: PANTOPRAZOLE SODIUM
     Indication: Gastrooesophageal reflux disease
     Dosage: 20 MILLIGRAM
     Route: 065
  14. PANTOPRAZOLE SODIUM [Concomitant]
     Active Substance: PANTOPRAZOLE SODIUM
     Dosage: 20 MILLIGRAM, QD (EVERY 2-3 DAYS)
     Route: 048
     Dates: start: 2011
  15. SODIUM CHLORIDE [Concomitant]
     Active Substance: SODIUM CHLORIDE
     Dosage: 100 MILLILITER
     Route: 065
  16. ROSUVASTATIN [Concomitant]
     Active Substance: ROSUVASTATIN
     Dosage: UNK, QD
     Route: 065
  17. FLUTICASONE PROPIONATE\SALMETEROL XINAFOATE [Concomitant]
     Active Substance: FLUTICASONE PROPIONATE\SALMETEROL XINAFOATE
     Indication: Asthma
     Dosage: 1 DOSAGE FORM, BID
     Route: 065
  18. FLUTICASONE PROPIONATE\SALMETEROL XINAFOATE [Concomitant]
     Active Substance: FLUTICASONE PROPIONATE\SALMETEROL XINAFOATE
     Dosage: 550 MICROGRAM, BID
     Route: 065
     Dates: start: 2011
  19. SIMVASTATIN [Concomitant]
     Active Substance: SIMVASTATIN
     Dosage: 20 MILLIGRAM, QD
     Route: 065
     Dates: start: 20190823
  20. CLEMASTINE FUMARATE [Concomitant]
     Active Substance: CLEMASTINE FUMARATE
     Indication: Premedication
     Dosage: UNK
     Route: 042
  21. IBUPROFEN [Concomitant]
     Active Substance: IBUPROFEN
     Dosage: 400 MILLIGRAM, PRN(AS REQUIRED)
     Route: 048
  22. IBUPROFEN [Concomitant]
     Active Substance: IBUPROFEN
     Dosage: 600 MILLIGRAM (1-0-0-1)
     Route: 065
  23. LEVOTHYROXINE SODIUM\POTASSIUM IODIDE [Concomitant]
     Active Substance: LEVOTHYROXINE SODIUM\POTASSIUM IODIDE
     Indication: Hypothyroidism
     Dosage: 100 MICROGRAM, QD
     Route: 048
     Dates: start: 2011
  24. LEVOTHYROXINE SODIUM\POTASSIUM IODIDE [Concomitant]
     Active Substance: LEVOTHYROXINE SODIUM\POTASSIUM IODIDE
     Dosage: 100 MICROGRAM, QD
     Route: 048
  25. ALBUTEROL [Concomitant]
     Active Substance: ALBUTEROL
     Dosage: UNK
     Route: 065
  26. ALBUTEROL [Concomitant]
     Active Substance: ALBUTEROL
     Dosage: UNK, PRN
     Route: 065
  27. Apydan [Concomitant]
     Dosage: 600 MILLIGRAM, BID
     Route: 048
     Dates: start: 20180724
  28. Apydan [Concomitant]
     Dosage: 600 MILLIGRAM, BID
     Route: 048
  29. Apydan [Concomitant]
     Dosage: 600 MILLIGRAM, BID
     Route: 065
  30. LEVETIRACETAM [Concomitant]
     Active Substance: LEVETIRACETAM
     Indication: Epilepsy
     Dosage: 1000 MILLIGRAM, BID
     Route: 048
     Dates: start: 2017
  31. DOXYCYCLINE [Concomitant]
     Active Substance: DOXYCYCLINE
     Dosage: 100 (1-0-1)
     Route: 065

REACTIONS (53)
  - Type 2 diabetes mellitus [Unknown]
  - Blood glucose increased [Recovered/Resolved]
  - Basal cell carcinoma [Recovered/Resolved]
  - Multiple sclerosis relapse [Recovered/Resolved]
  - Lumbar vertebral fracture [Recovered/Resolved]
  - Lyme disease [Not Recovered/Not Resolved]
  - Myocardial infarction [Recovered/Resolved]
  - Injection site swelling [Recovered/Resolved]
  - Blood cholesterol increased [Recovered/Resolved]
  - Cardiovascular disorder [Recovered/Resolved]
  - B-lymphocyte count decreased [Recovered/Resolved]
  - Interleukin level increased [Unknown]
  - Bronchitis [Recovered/Resolved]
  - Aortic disorder [Recovered/Resolved]
  - Intervertebral disc protrusion [Recovering/Resolving]
  - Herpes zoster [Recovered/Resolved]
  - Lymph node pain [Recovered/Resolved]
  - Uhthoff^s phenomenon [Not Recovered/Not Resolved]
  - Pelvic pain [Recovered/Resolved]
  - Vaginal infection [Recovered/Resolved]
  - Hyperhidrosis [Recovered/Resolved]
  - Fall [Unknown]
  - Granuloma annulare [Not Recovered/Not Resolved]
  - Urticaria [Recovered/Resolved]
  - Haematoma [Recovered/Resolved]
  - Depressed mood [Not Recovered/Not Resolved]
  - Sensory disturbance [Not Recovered/Not Resolved]
  - Muscular weakness [Recovered/Resolved]
  - Pain in extremity [Not Recovered/Not Resolved]
  - Epistaxis [Recovered/Resolved]
  - Fatigue [Recovered/Resolved]
  - Paraesthesia [Not Recovered/Not Resolved]
  - Chills [Recovered/Resolved]
  - Headache [Unknown]
  - Nasopharyngitis [Recovering/Resolving]
  - Myalgia [Not Recovered/Not Resolved]
  - Diarrhoea [Recovered/Resolved]
  - Asthenia [Recovered/Resolved]
  - Arthralgia [Recovered/Resolved]
  - Illness [Not Recovered/Not Resolved]
  - Erythema [Recovered/Resolved]
  - COVID-19 [Recovered/Resolved]
  - Product administration error [Unknown]
  - Urinary incontinence [Not Recovered/Not Resolved]
  - Back pain [Not Recovered/Not Resolved]
  - Oropharyngeal pain [Recovered/Resolved]
  - Taste disorder [Not Recovered/Not Resolved]
  - B-lymphocyte abnormalities [Recovered/Resolved]
  - Disturbance in attention [Not Recovered/Not Resolved]
  - Hypertension [Unknown]
  - Granulocyte count increased [Recovered/Resolved]
  - Dyspnoea [Unknown]
  - Eosinophil count increased [Recovered/Resolved]

NARRATIVE: CASE EVENT DATE: 20180822
